FAERS Safety Report 4930372-0 (Version None)
Quarter: 2006Q1

REPORT INFORMATION
  Report Type: 
  Country: None (occurrence: None)
  Receive Date: 20060302
  Receipt Date: 20060215
  Transmission Date: 20060701
  Serious: Yes (Life-Threatening, Hospitalization)
  Sender: FDA-Public Use
  Company Number: US-GLAXOSMITHKLINE-B0411693A

PATIENT
  Age: 80 Year
  Sex: Male

DRUGS (3)
  1. ALBUTEROL [Suspect]
     Indication: CHRONIC OBSTRUCTIVE PULMONARY DISEASE
     Route: 055
  2. LEVALBUTEROL HCL [Suspect]
     Indication: CHRONIC OBSTRUCTIVE PULMONARY DISEASE
     Route: 055
  3. IPRATROPIUM BROMIDE [Concomitant]
     Indication: CHRONIC OBSTRUCTIVE PULMONARY DISEASE
     Route: 055

REACTIONS (5)
  - BREATH SOUNDS ABNORMAL [None]
  - BRONCHOSPASM PARADOXICAL [None]
  - DYSPNOEA EXACERBATED [None]
  - OXYGEN SATURATION DECREASED [None]
  - TACHYPNOEA [None]
